FAERS Safety Report 9507154 (Version 1)
Quarter: 2013Q1

REPORT INFORMATION
  Report Type: Spontaneous
  Country: US (occurrence: None)
  Receive Date: 20130301
  Receipt Date: 20130301
  Transmission Date: 20140127
  Serious: Yes (Other)
  Sender: FDA-Public Use
  Company Number: RB-38899-2012

PATIENT
  Sex: Female

DRUGS (5)
  1. SUBUTEX [Suspect]
     Indication: DRUG DEPENDENCE
     Route: 064
     Dates: start: 200906, end: 200912
  2. SUBOXONE [Suspect]
     Indication: DRUG DEPENDENCE
     Route: 064
     Dates: start: 200912, end: 20100120
  3. OPIOIDS [Suspect]
     Route: 064
     Dates: start: 2009, end: 200906
  4. ANTIDEPRESSANTS [Suspect]
     Indication: DEPRESSION
     Dates: start: 2009, end: 200906
  5. PRENATAL VITAMINS [Suspect]
     Indication: PREGNANCY
     Route: 064

REACTIONS (4)
  - Foetal exposure during pregnancy [None]
  - Drug withdrawal syndrome neonatal [None]
  - Neonatal disorder [None]
  - Sneezing [None]
